FAERS Safety Report 11741091 (Version 1)
Quarter: 2015Q4

REPORT INFORMATION
  Report Type: Spontaneous
  Country: US (occurrence: US)
  Receive Date: 20151116
  Receipt Date: 20151116
  Transmission Date: 20160304
  Serious: No
  Sender: FDA-Public Use
  Company Number: US-ASTRAZENECA-2014SE58101

PATIENT
  Sex: Male
  Weight: 99.8 kg

DRUGS (5)
  1. BYDUREON [Suspect]
     Active Substance: EXENATIDE
     Indication: TYPE 2 DIABETES MELLITUS
     Route: 058
  2. LANTUS [Concomitant]
     Active Substance: INSULIN GLARGINE
  3. INSULIN [Concomitant]
     Active Substance: INSULIN NOS
     Dosage: 70/30 COMBINATION
     Route: 058
  4. BYDUREON [Suspect]
     Active Substance: EXENATIDE
     Indication: TYPE 2 DIABETES MELLITUS
     Route: 065
  5. BYETTA [Suspect]
     Active Substance: EXENATIDE
     Route: 065

REACTIONS (5)
  - Product quality issue [Unknown]
  - Injection site haemorrhage [Unknown]
  - Blood glucose fluctuation [Unknown]
  - Drug dose omission [Unknown]
  - Intentional product misuse [Unknown]
